FAERS Safety Report 5030031-2 (Version None)
Quarter: 2006Q2

REPORT INFORMATION
  Report Type: 
  Country: None (occurrence: None)
  Receive Date: 20060614
  Receipt Date: 20060529
  Transmission Date: 20061013
  Serious: Yes (Other)
  Sender: FDA-Public Use
  Company Number: AU200606001230

PATIENT
  Age: 38 Year
  Sex: Female

DRUGS (3)
  1. XIGRIS [Suspect]
     Indication: SEPSIS
     Dosage: 24 OTHER
     Dates: start: 20060525
  2. NORADRENALINE (NOREPINEPHRINE) [Concomitant]
  3. ANTIBIOTICS [Concomitant]

REACTIONS (1)
  - PLATELET COUNT DECREASED [None]
